FAERS Safety Report 16423216 (Version 15)
Quarter: 2025Q1

REPORT INFORMATION
  Report Type: Report from Study
  Country: US (occurrence: US)
  Receive Date: 20190612
  Receipt Date: 20250108
  Transmission Date: 20250408
  Serious: Yes (Hospitalization, Other)
  Sender: TAKEDA
  Company Number: US-SHIRE-US201918462

PATIENT
  Age: 68 Year
  Sex: Female
  Weight: 60 kg

DRUGS (53)
  1. HUMAN IMMUNOGLOBULIN G [Suspect]
     Active Substance: HUMAN IMMUNOGLOBULIN G
     Indication: Immunodeficiency common variable
     Dosage: 10 GRAM, 1/WEEK
     Dates: start: 20180115
  2. HUMAN IMMUNOGLOBULIN G [Suspect]
     Active Substance: HUMAN IMMUNOGLOBULIN G
     Dosage: 10 GRAM, 1/WEEK
     Dates: start: 20180117
  3. HUMAN IMMUNOGLOBULIN G [Suspect]
     Active Substance: HUMAN IMMUNOGLOBULIN G
     Dosage: 10 GRAM, 1/WEEK
     Dates: start: 20180305
  4. ACETAMINOPHEN [Concomitant]
     Active Substance: ACETAMINOPHEN
  5. DIPHENHYDRAMINE [Concomitant]
     Active Substance: DIPHENHYDRAMINE
  6. LIDOCAINE [Concomitant]
     Active Substance: LIDOCAINE
  7. EPINEPHRINE [Concomitant]
     Active Substance: EPINEPHRINE
  8. GABAPENTIN [Concomitant]
     Active Substance: GABAPENTIN
  9. ALVESCO [Concomitant]
     Active Substance: CICLESONIDE
  10. MUCINEX [Concomitant]
     Active Substance: GUAIFENESIN
  11. KLONOPIN [Concomitant]
     Active Substance: CLONAZEPAM
  12. LEVOCETIRIZINE DIHYDROCHLORIDE [Concomitant]
     Active Substance: LEVOCETIRIZINE DIHYDROCHLORIDE
  13. DOXYCYCLINE [Concomitant]
     Active Substance: DOXYCYCLINE
  14. SEREVENT DISKUS [Concomitant]
     Active Substance: SALMETEROL XINAFOATE
  15. WELLBUTRIN [Concomitant]
     Active Substance: BUPROPION HYDROCHLORIDE
  16. MAGNESIUM [Concomitant]
     Active Substance: MAGNESIUM
  17. MELATONIN [Concomitant]
     Active Substance: MELATONIN
  18. CLONAZEPAM [Concomitant]
     Active Substance: CLONAZEPAM
  19. BENZONATATE [Concomitant]
     Active Substance: BENZONATATE
  20. VITAMIN D3 [Concomitant]
     Active Substance: CHOLECALCIFEROL
  21. CALCIUM [Concomitant]
     Active Substance: CALCIUM
  22. NASACORT [Concomitant]
     Active Substance: TRIAMCINOLONE ACETONIDE
  23. ADDERALL [Concomitant]
     Active Substance: AMPHETAMINE ASPARTATE\AMPHETAMINE SULFATE\DEXTROAMPHETAMINE SACCHARATE\DEXTROAMPHETAMINE SULFATE
  24. ABILIFY [Concomitant]
     Active Substance: ARIPIPRAZOLE
  25. PREVACID [Concomitant]
     Active Substance: LANSOPRAZOLE
  26. VENTOLIN HFA [Concomitant]
     Active Substance: ALBUTEROL SULFATE
  27. CALAN [Concomitant]
     Active Substance: VERAPAMIL HYDROCHLORIDE
  28. ELIQUIS [Concomitant]
     Active Substance: APIXABAN
  29. INCRUSE ELLIPTA [Concomitant]
     Active Substance: UMECLIDINIUM BROMIDE
  30. FOLIC ACID [Concomitant]
     Active Substance: FOLIC ACID
  31. SYMBICORT [Concomitant]
     Active Substance: BUDESONIDE\FORMOTEROL FUMARATE DIHYDRATE
  32. SULFASALAZINE [Concomitant]
     Active Substance: SULFASALAZINE
  33. ROSUVASTATIN CALCIUM [Concomitant]
     Active Substance: ROSUVASTATIN CALCIUM
  34. ESCITALOPRAM OXALATE [Concomitant]
     Active Substance: ESCITALOPRAM OXALATE
  35. MAGNESIUM OXIDE [Concomitant]
     Active Substance: MAGNESIUM OXIDE
  36. VITAMIN C [Concomitant]
     Active Substance: ASCORBIC ACID
  37. HYDROXYCHLOROQUINE SULFATE [Concomitant]
     Active Substance: HYDROXYCHLOROQUINE SULFATE
  38. FLUTICASONE PROPIONATE [Concomitant]
     Active Substance: FLUTICASONE PROPIONATE
  39. HUMIRA [Concomitant]
     Active Substance: ADALIMUMAB
  40. CALCIUM\CHOLECALCIFEROL [Concomitant]
     Active Substance: CALCIUM\CHOLECALCIFEROL
  41. FLONASE [Concomitant]
     Active Substance: FLUTICASONE PROPIONATE
  42. ALBUTEROL SULFATE [Concomitant]
     Active Substance: ALBUTEROL SULFATE
  43. OMEGA-3 ACIDS [Concomitant]
     Active Substance: OMEGA-3 FATTY ACIDS
  44. PEPCID [Concomitant]
     Active Substance: FAMOTIDINE
  45. LOSARTAN POTASSIUM [Concomitant]
     Active Substance: LOSARTAN POTASSIUM
  46. DIPHENHYDRAMINE HYDROCHLORIDE [Concomitant]
     Active Substance: DIPHENHYDRAMINE HYDROCHLORIDE
  47. HYDROXYCHLOROQUINE [Concomitant]
     Active Substance: HYDROXYCHLOROQUINE
  48. LOSARTAN [Concomitant]
     Active Substance: LOSARTAN
  49. FLUTICASONE [Concomitant]
     Active Substance: FLUTICASONE
  50. ROSUVASTATIN [Concomitant]
     Active Substance: ROSUVASTATIN
  51. ESCITALOPRAM [Concomitant]
     Active Substance: ESCITALOPRAM OXALATE
  52. LEVOCETIRIZINE [Concomitant]
     Active Substance: LEVOCETIRIZINE
  53. ALBUTEROL [Concomitant]
     Active Substance: ALBUTEROL

REACTIONS (20)
  - Bronchitis [Unknown]
  - Pneumonia [Unknown]
  - Post procedural complication [Unknown]
  - Influenza [Unknown]
  - Pulmonary embolism [Unknown]
  - Dyspnoea [Unknown]
  - COVID-19 [Unknown]
  - Allergic respiratory disease [Unknown]
  - Viral infection [Unknown]
  - Candida infection [Unknown]
  - Pharyngitis [Unknown]
  - Respiratory tract infection [Unknown]
  - Dermatitis contact [Unknown]
  - Onychomycosis [Unknown]
  - Sinusitis [Unknown]
  - Weight decreased [Unknown]
  - Decreased appetite [Unknown]
  - Infusion site pruritus [Unknown]
  - Infusion site swelling [Unknown]
  - Infusion site erythema [Unknown]

NARRATIVE: CASE EVENT DATE: 20190521
